FAERS Safety Report 4642069-5 (Version None)
Quarter: 2005Q2

REPORT INFORMATION
  Report Type: 
  Country: None (occurrence: None)
  Receive Date: 20050420
  Receipt Date: 20050405
  Transmission Date: 20051028
  Serious: Yes (Hospitalization)
  Sender: FDA-Public Use
  Company Number: JP_050406289

PATIENT
  Age: 23 Year
  Sex: Female

DRUGS (5)
  1. ZYPREXA [Suspect]
     Indication: EATING DISORDER
     Dosage: 2.5 MG DAY
     Dates: start: 20050119, end: 20050215
  2. FERO GRADUMET [Concomitant]
  3. MARZULENE S [Concomitant]
  4. GLYCYRON [Concomitant]
  5. TPN [Concomitant]

REACTIONS (1)
  - WHITE BLOOD CELL COUNT DECREASED [None]
